FAERS Safety Report 7453716-7 (Version None)
Quarter: 2011Q2

REPORT INFORMATION
  Report Type: 
  Country: None (occurrence: None)
  Receive Date: 20110502
  Receipt Date: 20110112
  Transmission Date: 20111010
  Serious: No
  Sender: FDA-Public Use
  Company Number: US-ASTRAZENECA-2011SE02081

PATIENT
  Sex: Male

DRUGS (2)
  1. SYNTHROID [Concomitant]
  2. NEXIUM [Suspect]
     Indication: DYSPEPSIA
     Route: 048
     Dates: start: 20060101

REACTIONS (3)
  - ERECTILE DYSFUNCTION [None]
  - INGUINAL HERNIA [None]
  - DYSKINESIA [None]
